FAERS Safety Report 5295657-X (Version None)
Quarter: 2007Q2

REPORT INFORMATION
  Report Type: 
  Country: None (occurrence: None)
  Receive Date: 20070410
  Receipt Date: 20070410
  Transmission Date: 20071010
  Serious: Yes (Hospitalization)
  Sender: FDA-Public Use
  Company Number: None

PATIENT
  Sex: Female
  Weight: 131 kg

DRUGS (11)
  1. LORAZEPAM [Suspect]
     Indication: AGITATION
     Dosage: 2 MG Q3H (PO)
     Route: 048
     Dates: start: 20061125, end: 20061126
  2. LORAZEPAM [Suspect]
     Indication: ALCOHOL WITHDRAWAL SYNDROME
     Dosage: 2 MG Q3H (PO)
     Route: 048
     Dates: start: 20061125, end: 20061126
  3. LORAZEPAM [Suspect]
     Dosage: 2MG Q2H PRN (IV)
     Route: 042
     Dates: start: 20061125, end: 20061127
  4. OXYCONTIN [Concomitant]
  5. CLONIDINE [Concomitant]
  6. MIRTAZAPINE [Concomitant]
  7. OCTREOTIDE ACETATE [Concomitant]
  8. PANTOPRAZOLE IV [Concomitant]
  9. RISPERDAL [Concomitant]
  10. SIMVASTATIN [Concomitant]
  11. CIPROFLOXACIN [Concomitant]

REACTIONS (3)
  - EPISTAXIS [None]
  - HAEMATEMESIS [None]
  - MENTAL IMPAIRMENT [None]
